FAERS Safety Report 6914825 (Version 2)
Quarter: 2020Q3

REPORT INFORMATION
  Report Type: Report from Study
  Country: DE (occurrence: DE)
  Receive Date: 20090220
  Receipt Date: 20090303
  Transmission Date: 20201104
  Serious: Yes (Hospitalization, Other)
  Sender: FDA-Public Use
  Company Number: DE-ROCHE-614850

PATIENT
  Age: 68 Year
  Sex: Male
  Weight: 79 kg

DRUGS (4)
  1. BENDAMUSTINE [Concomitant]
     Active Substance: BENDAMUSTINE
     Dosage: DRUG REPORTED AS BENDAMUSTIN
  2. IBANDRONIC ACID. [Suspect]
     Active Substance: IBANDRONIC ACID
     Indication: PLASMA CELL MYELOMA
     Dosage: LAST DOSE PRIOR TO EVENT: 13 AUG 2008
     Route: 042
     Dates: start: 20061102, end: 20080922
  3. DEXAMETHASONE. [Concomitant]
     Active Substance: DEXAMETHASONE
     Dates: end: 20080920
  4. PREDNISONE. [Concomitant]
     Active Substance: PREDNISONE
     Dosage: DRUG REPORTED AS PREDNISON

REACTIONS (9)
  - Diarrhoea [Unknown]
  - Diabetes mellitus [Unknown]
  - Pneumonia [Unknown]
  - Pyrexia [Unknown]
  - Hypokalaemia [Unknown]
  - General physical health deterioration [Recovered/Resolved]
  - Decreased appetite [Unknown]
  - Plasmacytoma [Unknown]
  - Atrial fibrillation [Unknown]

NARRATIVE: CASE EVENT DATE: 20071101
